FAERS Safety Report 24610934 (Version 1)
Quarter: 2024Q4

REPORT INFORMATION
  Report Type: Spontaneous
  Country: US (occurrence: US)
  Receive Date: 20241112
  Receipt Date: 20241112
  Transmission Date: 20250115
  Serious: No
  Sender: ABBVIE
  Company Number: US-ABBVIE-5993583

PATIENT
  Age: 14 Year
  Sex: Female

DRUGS (1)
  1. LO LOESTRIN FE [Suspect]
     Active Substance: ETHINYL ESTRADIOL\NORETHINDRONE ACETATE
     Indication: Dysmenorrhoea
     Dosage: FORM STRENGTH- NORETHINDRONE 1MG;ETHINYL ESTRAD 10?G;ETHINYL?ESTRAD 10?G TAB
     Route: 048
     Dates: start: 202209

REACTIONS (1)
  - Back pain [Unknown]

NARRATIVE: CASE EVENT DATE: 20221201
